FAERS Safety Report 4747582-8 (Version None)
Quarter: 2005Q3

REPORT INFORMATION
  Report Type: 
  Country: None (occurrence: None)
  Receive Date: 20050818
  Receipt Date: 20041011
  Transmission Date: 20060218
  Serious: No
  Sender: FDA-Public Use
  Company Number: US-BRISTOL-MYERS SQUIBB COMPANY-12727954

PATIENT
  Age: 5 Decade
  Sex: Male

DRUGS (1)
  1. TEQUIN [Suspect]
     Route: 048

REACTIONS (2)
  - NERVOUSNESS [None]
  - TREMOR [None]
